FAERS Safety Report 15811212 (Version 2)
Quarter: 2019Q1

REPORT INFORMATION
  Report Type: Spontaneous
  Country: RU (occurrence: RU)
  Receive Date: 20190111
  Receipt Date: 20190201
  Transmission Date: 20190417
  Serious: Yes (Hospitalization)
  Sender: FDA-Public Use
  Company Number: RU-TEVA-2019-RU-997556

PATIENT
  Age: 9 Year
  Sex: Male
  Weight: 29 kg

DRUGS (6)
  1. CEFTRIAXONE. [Concomitant]
     Active Substance: CEFTRIAXONE
     Indication: SINUSITIS
     Route: 042
     Dates: start: 20181019, end: 20181028
  2. DAUNORUBICIN-LANS [Concomitant]
     Indication: ACUTE LYMPHOCYTIC LEUKAEMIA
     Route: 042
     Dates: start: 20181005, end: 20181019
  3. COTRIMOXAZOLE [Concomitant]
     Active Substance: SULFAMETHOXAZOLE\TRIMETHOPRIM
     Indication: PNEUMOCYSTIS JIROVECII PNEUMONIA
     Route: 048
     Dates: start: 20181019
  4. VINCRISTINE -TEVA [Suspect]
     Active Substance: VINCRISTINE
     Indication: ACUTE LYMPHOCYTIC LEUKAEMIA
     Dosage: 1.4 MILLIGRAM DAILY; THE DOSE THAT CAUSED THE AES 1.4 MG
     Route: 042
     Dates: start: 20181005, end: 20181026
  5. DEXAMETHASONE-KRKA [Suspect]
     Active Substance: DEXAMETHASONE
     Dosage: 6 MILLIGRAM DAILY; THE DOSE THAT CAUSED THE AES 6 MG
     Route: 048
     Dates: start: 20180928, end: 20181103
  6. AVOMIT [Concomitant]
     Indication: VOMITING
     Route: 042
     Dates: start: 20181005, end: 20181102

REACTIONS (8)
  - Constipation [Recovering/Resolving]
  - Faecaloma [Recovering/Resolving]
  - Pain [Recovering/Resolving]
  - Polyneuropathy [Recovering/Resolving]
  - Toxic neuropathy [Recovering/Resolving]
  - Gait inability [Recovering/Resolving]
  - Dysstasia [Recovering/Resolving]
  - Intestinal obstruction [Recovering/Resolving]

NARRATIVE: CASE EVENT DATE: 20181106
